FAERS Safety Report 5306041-4 (Version None)
Quarter: 2007Q2

REPORT INFORMATION
  Report Type: 
  Country: None (occurrence: None)
  Receive Date: 20070424
  Receipt Date: 20070413
  Transmission Date: 20071010
  Serious: Yes (Other)
  Sender: FDA-Public Use
  Company Number: US-ROCHE-492965

PATIENT
  Age: 16 Year
  Sex: Male
  Weight: 72.6 kg

DRUGS (3)
  1. ACCUTANE [Suspect]
     Dosage: PATIENT WAS DISPENSED ACCUTANE 40 MG CAPSULES ON 18-JUL-06, 17-AUG-06, AND 19-SEP-06.
     Route: 048
     Dates: start: 20060718, end: 20061004
  2. AMNESTEEM [Suspect]
     Dosage: THE PATIENT WAS DISPENSED AMNESTEEM 40 MG CAPSULES ON 12-JUN-06.
     Route: 048
     Dates: start: 20060612
  3. AMNESTEEM [Suspect]
     Route: 048
     Dates: start: 20060713

REACTIONS (1)
  - LYMPHOMA [None]
